FAERS Safety Report 14120867 (Version 1)
Quarter: 2017Q4

REPORT INFORMATION
  Report Type: Spontaneous
  Country: US (occurrence: US)
  Receive Date: 20171024
  Receipt Date: 20171024
  Transmission Date: 20180321
  Serious: Yes (Hospitalization)
  Sender: FDA-Public Use
  Company Number: US-SA-2017SA203603

PATIENT
  Age: 38 Year
  Sex: Female

DRUGS (1)
  1. AUBAGIO [Suspect]
     Active Substance: TERIFLUNOMIDE
     Indication: MULTIPLE SCLEROSIS
     Route: 048
     Dates: start: 201607, end: 201710

REACTIONS (4)
  - Gastritis [Unknown]
  - Dehydration [Unknown]
  - Ventricular tachycardia [Unknown]
  - Pancreatitis [Unknown]

NARRATIVE: CASE EVENT DATE: 20171003
